FAERS Safety Report 4625059-8 (Version None)
Quarter: 2005Q2

REPORT INFORMATION
  Report Type: 
  Country: None (occurrence: None)
  Receive Date: 20050325
  Receipt Date: 20050126
  Transmission Date: 20051028
  Serious: No
  Sender: FDA-Public Use
  Company Number: US_0502112850

PATIENT
  Age: 48 Year
  Sex: Female
  Weight: 109 kg

DRUGS (2)
  1. FORTEO [Suspect]
     Indication: OSTEOPOROSIS
     Dosage: 20 UG
     Dates: start: 20050123
  2. COPAXONE [Concomitant]

REACTIONS (1)
  - PAIN IN EXTREMITY [None]
